FAERS Safety Report 14535176 (Version 1)
Quarter: 2018Q1

REPORT INFORMATION
  Report Type: Spontaneous
  Country: US (occurrence: US)
  Receive Date: 20180215
  Receipt Date: 20180215
  Transmission Date: 20180509
  Serious: No
  Sender: FDA-Public Use
  Company Number: US-009507513-1802USA007258

PATIENT
  Age: 68 Year
  Sex: Male

DRUGS (2)
  1. NASONEX [Suspect]
     Active Substance: MOMETASONE FUROATE
     Indication: HYPERSENSITIVITY
     Dosage: 2 SPRAYS EACH NOSTRIL, ONCE DAILY
     Route: 045
     Dates: end: 201707
  2. NASONEX [Suspect]
     Active Substance: MOMETASONE FUROATE
     Indication: SWELLING

REACTIONS (4)
  - Dyspnoea [Not Recovered/Not Resolved]
  - Inability to afford medication [Not Recovered/Not Resolved]
  - Product use in unapproved indication [Unknown]
  - Drug dose omission [Unknown]
